FAERS Safety Report 8041259-1 (Version None)
Quarter: 2012Q1

REPORT INFORMATION
  Report Type: 
  Country: None (occurrence: None)
  Receive Date: 20120112
  Receipt Date: 20120109
  Transmission Date: 20120608
  Serious: No
  Sender: FDA-Public Use
  Company Number: US-PFIZER INC-2011258387

PATIENT
  Sex: Female
  Weight: 83.9 kg

DRUGS (6)
  1. PREMARIN [Suspect]
     Indication: SMEAR CERVIX ABNORMAL
     Dosage: 0.5 MG, UNK (0.5 MG QD X 8 WEEKS THEN TWICE A WEEK)
     Route: 067
     Dates: start: 20110823, end: 20111114
  2. FUROSEMIDE [Concomitant]
     Indication: LYMPHOEDEMA
     Dosage: UNK
  3. CALCIUM [Concomitant]
     Indication: BONE DISORDER
     Dosage: UNK
  4. PREMARIN [Suspect]
     Indication: OFF LABEL USE
     Dosage: 0.625 MG, 1X/DAY
     Route: 067
     Dates: start: 20110825
  5. ACTONEL [Concomitant]
     Indication: BONE DISORDER
     Dosage: UNK
  6. WARFARIN [Concomitant]
     Indication: THROMBOSIS
     Dosage: UNK
     Dates: start: 20060101

REACTIONS (2)
  - ALOPECIA [None]
  - TRICHORRHEXIS [None]
